FAERS Safety Report 9729315 (Version 3)
Quarter: 2013Q4

REPORT INFORMATION
  Report Type: Report from Study
  Country: FR (occurrence: FR)
  Receive Date: 20131204
  Receipt Date: 20131211
  Transmission Date: 20140711
  Serious: Yes (Other)
  Sender: FDA-Public Use
  Company Number: FR-PFIZER INC-2013080462

PATIENT
  Age: 38 Year
  Sex: Male
  Weight: 68 kg

DRUGS (3)
  1. ATGAM [Suspect]
     Indication: BONE MARROW FAILURE
     Dosage: 40 MG/KG PER DAY
     Route: 042
     Dates: start: 20121003, end: 20121006
  2. NEORAL [Concomitant]
     Indication: BONE MARROW FAILURE
     Dosage: 2 MG/KG, 2X/DAY
  3. POLARAMINE [Concomitant]
     Indication: PREMEDICATION
     Dosage: UNK

REACTIONS (5)
  - Rash generalised [Recovered/Resolved]
  - Arthralgia [Recovered/Resolved]
  - Serum sickness [Recovering/Resolving]
  - Renal failure acute [Recovering/Resolving]
  - C-reactive protein increased [Recovering/Resolving]
